FAERS Safety Report 24146220 (Version 11)
Quarter: 2025Q4

REPORT INFORMATION
  Report Type: Report from Study
  Country: CA (occurrence: CA)
  Receive Date: 20240729
  Receipt Date: 20251212
  Transmission Date: 20260117
  Serious: Yes (Hospitalization, Other)
  Sender: TAKEDA
  Company Number: CA-TAKEDA-2024TUS075819

PATIENT
  Age: 64 Year
  Sex: Male

DRUGS (6)
  1. VEDOLIZUMAB [Suspect]
     Active Substance: VEDOLIZUMAB
     Indication: Crohn^s disease
     Dosage: 300 MILLIGRAM
  2. VEDOLIZUMAB [Suspect]
     Active Substance: VEDOLIZUMAB
     Dosage: 300 MILLIGRAM
  3. VEDOLIZUMAB [Suspect]
     Active Substance: VEDOLIZUMAB
     Dosage: 300 MILLIGRAM
  4. BUDESONIDE [Concomitant]
     Active Substance: BUDESONIDE
     Dosage: UNK
  5. ENTOCORT [Concomitant]
     Active Substance: BUDESONIDE
     Dosage: UNK
  6. Cortiment [Concomitant]
     Dosage: UNK

REACTIONS (8)
  - Thrombosis [Unknown]
  - Crohn^s disease [Unknown]
  - Gallbladder disorder [Not Recovered/Not Resolved]
  - Haemoglobin decreased [Recovering/Resolving]
  - Lung neoplasm malignant [Not Recovered/Not Resolved]
  - Arthralgia [Unknown]
  - Fatigue [Unknown]
  - Nasopharyngitis [Unknown]

NARRATIVE: CASE EVENT DATE: 20240725
